FAERS Safety Report 7809911-8 (Version None)
Quarter: 2011Q4

REPORT INFORMATION
  Report Type: 
  Country: None (occurrence: None)
  Receive Date: 20111012
  Receipt Date: 20111004
  Transmission Date: 20120403
  Serious: Yes (Other)
  Sender: FDA-Public Use
  Company Number: US-PURDUE-USA-2011-0075758

PATIENT
  Sex: Female

DRUGS (2)
  1. OXYCONTIN [Suspect]
     Dosage: 20 MG, TID
     Route: 048
     Dates: start: 20110929, end: 20111002
  2. OXYCONTIN [Suspect]
     Indication: PAIN
     Dosage: 40 MG, TID
     Route: 048
     Dates: start: 20110101, end: 20110930

REACTIONS (8)
  - PRURITUS [None]
  - RESPIRATORY DISORDER [None]
  - IRRITABILITY [None]
  - DRUG INEFFECTIVE [None]
  - BREAST CANCER [None]
  - URTICARIA [None]
  - SWELLING [None]
  - NAUSEA [None]
